FAERS Safety Report 12333993 (Version 4)
Quarter: 2016Q4

REPORT INFORMATION
  Report Type: Report from Study
  Country: None (occurrence: TR)
  Receive Date: 20160504
  Receipt Date: 20161103
  Transmission Date: 20170207
  Serious: Yes (Hospitalization)
  Sender: FDA-Public Use
  Company Number: TR-ABBVIE-16P-161-1618034-00

PATIENT
  Age: 65 Year
  Sex: Female
  Weight: 60 kg

DRUGS (5)
  1. MOTILLIUM [Concomitant]
     Indication: PARKINSON^S DISEASE
     Route: 048
     Dates: end: 201605
  2. SEROQUEL [Concomitant]
     Active Substance: QUETIAPINE FUMARATE
     Indication: SLEEP DISORDER
     Dosage: 1 X 0.5
     Dates: end: 201605
  3. CIPRAM [Concomitant]
     Active Substance: CITALOPRAM HYDROBROMIDE
     Indication: PARKINSON^S DISEASE
     Route: 048
     Dates: end: 201605
  4. DUODOPA [Suspect]
     Active Substance: CARBIDOPA\LEVODOPA
     Indication: PARKINSON^S DISEASE
     Dosage: MD: 8.8 ML, CD: 5.0 ML, ED: 1.0 ML
     Route: 050
     Dates: start: 20160419, end: 20160429
  5. PK MERZ [Concomitant]
     Active Substance: AMANTADINE SULFATE
     Indication: PARKINSON^S DISEASE
     Dosage: 2X2
     Route: 048
     Dates: end: 201605

REACTIONS (2)
  - Abdominal pain [Recovered/Resolved]
  - Gastrointestinal motility disorder [Unknown]

NARRATIVE: CASE EVENT DATE: 20160427
